FAERS Safety Report 8488649-0 (Version None)
Quarter: 2012Q3

REPORT INFORMATION
  Report Type: 
  Country: None (occurrence: None)
  Receive Date: 20120705
  Receipt Date: 20120629
  Transmission Date: 20120928
  Serious: Yes (Other)
  Sender: FDA-Public Use
  Company Number: US-PFIZER INC-2012099797

PATIENT

DRUGS (13)
  1. LORTAB [Concomitant]
     Indication: PAIN
     Dosage: 10MG/500MG, 2X/DAY, PRN ( AS NEEDED)
     Route: 048
  2. DILANTIN KAPSEAL [Suspect]
     Dosage: 100 MG, 3X/DAY
     Route: 048
  3. LYRICA [Suspect]
     Dosage: 100 MG, 5X/DAY
     Route: 048
  4. VISTARIL [Suspect]
     Dosage: 50 MG, QHS (AT BEDTIME)
     Route: 048
  5. CELEXA [Concomitant]
     Dosage: 40 MG, DAILY (1 TABLET BY MOUTH DAILY)
     Route: 048
  6. CALCITRIOL [Concomitant]
     Dosage: 1 UG, 2X/DAY
     Route: 048
  7. AMBIEN [Concomitant]
     Indication: SLEEP DISORDER
     Dosage: 10 MG, TAKE 1 TABLET AS NEEDED, AT BEDTIME
     Route: 048
  8. ZESTORETIC [Concomitant]
     Dosage: 10MG/12.5MG, TAKE 1 TABLET DAILY
     Route: 048
  9. SYNTHROID [Concomitant]
     Dosage: 0.2 MG, 1X/DAY (2 TABLETS)
     Route: 048
  10. AMITRIPTYLINE HYDROCHLORIDE [Concomitant]
     Dosage: 25 MG, TAKE 1 TABLET AT BEDTIME
     Route: 048
  11. PRAVASTATIN [Concomitant]
     Dosage: 40 MG, TAKE 1 TABLET AT BEDTIME
     Route: 048
  12. TRAZODONE HYDROCHLORIDE [Concomitant]
     Dosage: 50 MG, TAKE 1 TABLET AT BEDTIME
     Route: 048
  13. CALTRATE + D [Concomitant]
     Dosage: 1200 MG, 3X/DAY
     Route: 048

REACTIONS (8)
  - HYPOTHYROIDISM [None]
  - DEPRESSION [None]
  - BENIGN PROSTATIC HYPERPLASIA [None]
  - BACK PAIN [None]
  - ESSENTIAL HYPERTENSION [None]
  - CONVULSION [None]
  - ERECTILE DYSFUNCTION [None]
  - PAIN IN EXTREMITY [None]
